FAERS Safety Report 4788821-7 (Version None)
Quarter: 2005Q4

REPORT INFORMATION
  Report Type: 
  Country: None (occurrence: None)
  Receive Date: 20051004
  Receipt Date: 20050923
  Transmission Date: 20060501
  Serious: Yes (Hospitalization)
  Sender: FDA-Public Use
  Company Number: 200510631BFR

PATIENT
  Age: 28 Year
  Sex: Male

DRUGS (7)
  1. CIPROFLOXACIN HCL [Suspect]
     Dosage: 800  MG, TOTAL DAILY, INTRAVENOUS
     Route: 042
     Dates: start: 20050629, end: 20050730
  2. SPASFON [Suspect]
     Dosage: QD, INTRAVENOUS
     Route: 042
     Dates: start: 20050622, end: 20050702
  3. FORTUM [Concomitant]
  4. VANCOMYCIN [Concomitant]
  5. CISPLATIN [Concomitant]
  6. FLOROURACIL [Concomitant]
  7. TAXOTERE [Concomitant]

REACTIONS (2)
  - CEREBELLAR SYNDROME [None]
  - FEBRILE BONE MARROW APLASIA [None]
